FAERS Safety Report 13186125 (Version 3)
Quarter: 2017Q2

REPORT INFORMATION
  Report Type: Report from Study
  Country: None (occurrence: BR)
  Receive Date: 20170204
  Receipt Date: 20170623
  Transmission Date: 20170830
  Serious: Yes (Other)
  Sender: FDA-Public Use
  Company Number: BR-ABBVIE-17K-020-1857483-00

PATIENT
  Age: 77 Year
  Sex: Female

DRUGS (1)
  1. HUMIRA [Suspect]
     Active Substance: ADALIMUMAB
     Indication: RHEUMATOID ARTHRITIS
     Route: 058
     Dates: start: 20130501, end: 201701

REACTIONS (1)
  - Gastrointestinal neoplasm [Unknown]

NARRATIVE: CASE EVENT DATE: 201607
